FAERS Safety Report 8892006 (Version 1)
Quarter: 2012Q4

REPORT INFORMATION
  Report Type: 
  Country: US (occurrence: US)
  Receive Date: 20121107
  Receipt Date: 20121107
  Transmission Date: 20130627
  Serious: No
  Sender: FDA-Public Use
  Company Number: US-AMGEN-USASP2011055742

PATIENT
  Age: 36 Year
  Sex: Female

DRUGS (9)
  1. ENBREL [Suspect]
     Indication: PRODUCT USED FOR UNKNOWN INDICATION
     Dosage: 50 mg, qwk
     Route: 058
  2. RESTASIS [Concomitant]
     Dosage: 0.05 %, UNK
     Route: 047
  3. METHOTREXATE [Concomitant]
     Dosage: 2.5 mg, UNK
     Route: 048
  4. VITAMIN D /00107901/ [Concomitant]
     Dosage: 1000 IU, UNK
     Route: 048
  5. SAM-E [Concomitant]
     Dosage: 200 mg, UNK
     Route: 048
  6. MULTIVITAMINS [Concomitant]
  7. CALCIUM + VIT D [Concomitant]
  8. ASPIRIN [Concomitant]
     Dosage: 81 mg, UNK
  9. OMEGA 3                            /01334101/ [Concomitant]
     Dosage: 1000 mg, UNK
     Route: 048

REACTIONS (1)
  - Fatigue [Unknown]
